FAERS Safety Report 13435923 (Version 2)
Quarter: 2018Q1

REPORT INFORMATION
  Report Type: Spontaneous
  Country: US (occurrence: US)
  Receive Date: 20170412
  Receipt Date: 20180330
  Transmission Date: 20180508
  Serious: No
  Sender: FDA-Public Use
  Company Number: US-SA-2016SA128787

PATIENT
  Age: 73 Year
  Sex: Male

DRUGS (2)
  1. ALLEGRA ALLERGY [Suspect]
     Active Substance: FEXOFENADINE HYDROCHLORIDE
     Indication: MULTIPLE ALLERGIES
     Dosage: START DATE IS SPRING 2016
     Route: 048
     Dates: start: 2016
  2. ALLEGRA ALLERGY [Suspect]
     Active Substance: FEXOFENADINE HYDROCHLORIDE
     Indication: MULTIPLE ALLERGIES
     Dosage: START DATE IS SPRING 2016
     Route: 048
     Dates: start: 2016

REACTIONS (7)
  - Hypervigilance [Unknown]
  - Therapeutic response decreased [Unknown]
  - Flatulence [Unknown]
  - Abdominal discomfort [Unknown]
  - Eructation [Unknown]
  - Asthma [Unknown]
  - Insomnia [Unknown]
